FAERS Safety Report 13723483 (Version 1)
Quarter: 2017Q3

REPORT INFORMATION
  Report Type: Spontaneous
  Country: US (occurrence: US)
  Receive Date: 20170706
  Receipt Date: 20170706
  Transmission Date: 20171127
  Serious: No
  Sender: FDA-Public Use
  Company Number: US-JNJFOC-20161110021

PATIENT
  Age: 72 Year
  Sex: Female
  Weight: 50.8 kg

DRUGS (1)
  1. LEVAQUIN [Suspect]
     Active Substance: LEVOFLOXACIN
     Indication: PULMONARY MASS
     Dosage: FOR 10 DAYS, COMPLETED THERAPY
     Route: 048
     Dates: start: 20161011, end: 2016

REACTIONS (2)
  - Arthralgia [Recovered/Resolved]
  - Drug ineffective [Unknown]

NARRATIVE: CASE EVENT DATE: 2016
